FAERS Safety Report 14277626 (Version 1)
Quarter: 2017Q4

REPORT INFORMATION
  Report Type: Spontaneous
  Country: ES (occurrence: ES)
  Receive Date: 20171211
  Receipt Date: 20171211
  Transmission Date: 20180321
  Serious: Yes (Other)
  Sender: FDA-Public Use
  Company Number: ES-OTSUKA-DJ201300260

PATIENT

DRUGS (4)
  1. SERECOR [Suspect]
     Active Substance: HYDROQUINIDINE HYDROCHLORIDE
     Route: 065
  2. VENLAFAXINE XR [Suspect]
     Active Substance: VENLAFAXINE HYDROCHLORIDE
  3. VANDRAL [Suspect]
     Active Substance: VENLAFAXINE HYDROCHLORIDE
     Route: 065
  4. ABILIFY [Suspect]
     Active Substance: ARIPIPRAZOLE
     Route: 048
     Dates: start: 201212

REACTIONS (6)
  - Weight increased [Unknown]
  - Somnolence [Unknown]
  - Vomiting [Unknown]
  - Musculoskeletal pain [Unknown]
  - Malaise [Unknown]
  - Syncope [Unknown]

NARRATIVE: CASE EVENT DATE: 201212
